FAERS Safety Report 4441992-4 (Version None)
Quarter: 2004Q3

REPORT INFORMATION
  Report Type: 
  Country: None (occurrence: None)
  Receive Date: 20040907
  Receipt Date: 20040830
  Transmission Date: 20050211
  Serious: Yes (Other)
  Sender: FDA-Public Use
  Company Number: SE-GLAXOSMITHKLINE-B0344355A

PATIENT
  Age: 62 Year
  Sex: Male

DRUGS (1)
  1. IMIGRAN [Suspect]
     Indication: MIGRAINE
     Dosage: 100MG PER DAY
     Route: 048

REACTIONS (2)
  - DEPENDENCE [None]
  - DRUG DEPENDENCE [None]
